FAERS Safety Report 7581587-7 (Version None)
Quarter: 2011Q2

REPORT INFORMATION
  Report Type: 
  Country: None (occurrence: None)
  Receive Date: 20110629
  Receipt Date: 20110620
  Transmission Date: 20111010
  Serious: Yes (Hospitalization)
  Sender: FDA-Public Use
  Company Number: US-ELI_LILLY_AND_COMPANY-US201106005588

PATIENT
  Sex: Female
  Weight: 126.98 kg

DRUGS (3)
  1. JANUMET [Concomitant]
     Indication: DIABETES MELLITUS
  2. BYETTA [Suspect]
     Indication: TYPE 2 DIABETES MELLITUS
     Dosage: 5 UG, BID
     Route: 058
     Dates: start: 20110525
  3. BYETTA [Suspect]
     Dosage: 10 UG, BID
     Route: 058
     Dates: start: 20110616

REACTIONS (3)
  - BLOOD GLUCOSE INCREASED [None]
  - RESPIRATORY DISORDER [None]
  - CHEST PAIN [None]
